FAERS Safety Report 13967483 (Version 2)
Quarter: 2017Q3

REPORT INFORMATION
  Report Type: Spontaneous
  Country: US (occurrence: US)
  Receive Date: 20170914
  Receipt Date: 20170918
  Transmission Date: 20171128
  Serious: No
  Sender: FDA-Public Use
  Company Number: US-PFIZER INC-2017397448

PATIENT
  Age: 51 Year
  Sex: Female
  Weight: 68 kg

DRUGS (2)
  1. ESTRING [Suspect]
     Active Substance: ESTRADIOL
     Indication: VULVOVAGINAL DRYNESS
     Dosage: UNK (VAGINAL RING)
     Dates: start: 201706, end: 201707
  2. ESTRING [Suspect]
     Active Substance: ESTRADIOL
     Indication: OESTROGEN THERAPY

REACTIONS (2)
  - Bacterial vaginosis [Unknown]
  - Wrong technique in product usage process [Unknown]

NARRATIVE: CASE EVENT DATE: 201707
